FAERS Safety Report 9377979 (Version 1)
Quarter: 2013Q3

REPORT INFORMATION
  Report Type: Spontaneous
  Country: US (occurrence: US)
  Receive Date: 20130701
  Receipt Date: 20130701
  Transmission Date: 20140515
  Serious: Yes (Life-Threatening, Other)
  Sender: FDA-Public Use
  Company Number: US-ELI_LILLY_AND_COMPANY-US201306008953

PATIENT
  Age: 65 Year
  Sex: Male

DRUGS (6)
  1. EFFIENT [Suspect]
     Indication: VASCULAR OPERATION
     Dosage: 60 MG, UNKNOWN
     Route: 048
  2. EFFIENT [Suspect]
     Dosage: 10 MG, QD
     Route: 048
  3. ASPIRIN [Concomitant]
     Indication: VASCULAR OPERATION
     Dosage: 325 MG, QD
     Route: 048
  4. CONTRAST MEDIA [Concomitant]
     Indication: VASCULAR OPERATION
  5. BIVALIRUDIN [Concomitant]
     Indication: PULMONARY EMBOLISM
     Route: 042
  6. COUMADIN [Concomitant]
     Indication: DEEP VEIN THROMBOSIS

REACTIONS (8)
  - Vessel perforation [Unknown]
  - Haemodynamic instability [Recovered/Resolved]
  - Arterial haemorrhage [Recovered/Resolved]
  - Haemorrhage [Recovered/Resolved]
  - Pulmonary embolism [Recovered/Resolved]
  - Deep vein thrombosis [Recovered/Resolved]
  - Haematoma [Recovered/Resolved]
  - Abdominal wall haematoma [Recovered/Resolved]
